FAERS Safety Report 12376093 (Version 2)
Quarter: 2016Q2

REPORT INFORMATION
  Report Type: Other
  Country: US (occurrence: US)
  Receive Date: 20160516
  Receipt Date: 20160526
  Transmission Date: 20160815
  Serious: Yes (Other)
  Sender: FDA-Public Use
  Company Number: 1710034-2016-00026

PATIENT
  Sex: Male

DRUGS (1)
  1. BD E-Z SCRUB 107 [Suspect]
     Active Substance: CHLORHEXIDINE GLUCONATE
     Route: 061

REACTIONS (1)
  - Skin irritation [Unknown]
